FAERS Safety Report 18109129 (Version 1)
Quarter: 2020Q3

REPORT INFORMATION
  Report Type: Spontaneous
  Country: GB (occurrence: GB)
  Receive Date: 20200804
  Receipt Date: 20200804
  Transmission Date: 20201103
  Serious: Yes (Death, Other)
  Sender: FDA-Public Use
  Company Number: GB-AMGEN-GBRSP2020123697

PATIENT
  Age: 68 Year
  Sex: Male

DRUGS (2)
  1. NEUPOGEN [Suspect]
     Active Substance: FILGRASTIM
     Indication: NEUTROPENIA
     Dosage: 5 MICROGRAM/SQ. METER, QD
     Route: 058
  2. NEUPOGEN [Suspect]
     Active Substance: FILGRASTIM
     Dosage: 10 MICROGRAM/SQ. METER, QD
     Route: 058

REACTIONS (1)
  - Pulmonary sepsis [Fatal]
